FAERS Safety Report 24791151 (Version 1)
Quarter: 2024Q4

REPORT INFORMATION
  Report Type: Spontaneous
  Country: US (occurrence: US)
  Receive Date: 20241230
  Receipt Date: 20241230
  Transmission Date: 20250114
  Serious: No
  Sender: ALEXION PHARMACEUTICALS
  Company Number: US-ASTRAZENECA-202412USA022909US

PATIENT

DRUGS (14)
  1. FARXIGA [Suspect]
     Active Substance: DAPAGLIFLOZIN PROPANEDIOL
     Dosage: UNK, BID
  2. FARXIGA [Suspect]
     Active Substance: DAPAGLIFLOZIN PROPANEDIOL
     Dosage: UNK, BID
     Route: 048
  3. FARXIGA [Suspect]
     Active Substance: DAPAGLIFLOZIN PROPANEDIOL
     Dosage: UNK, BID
  4. FARXIGA [Suspect]
     Active Substance: DAPAGLIFLOZIN PROPANEDIOL
     Dosage: UNK, BID
     Route: 048
  5. METOPROLOL [Suspect]
     Active Substance: METOPROLOL
     Route: 065
  6. METOPROLOL [Suspect]
     Active Substance: METOPROLOL
     Route: 065
  7. METOPROLOL [Suspect]
     Active Substance: METOPROLOL
     Route: 065
  8. METOPROLOL [Suspect]
     Active Substance: METOPROLOL
     Route: 065
  9. LASIX [Suspect]
     Active Substance: FUROSEMIDE
     Route: 065
  10. LASIX [Suspect]
     Active Substance: FUROSEMIDE
     Route: 065
  11. LASIX [Suspect]
     Active Substance: FUROSEMIDE
     Route: 065
  12. LASIX [Suspect]
     Active Substance: FUROSEMIDE
     Route: 065
  13. ENTRESTO [Suspect]
     Active Substance: SACUBITRIL\VALSARTAN
     Dosage: 49/51MG
     Route: 048
  14. ENTRESTO [Suspect]
     Active Substance: SACUBITRIL\VALSARTAN
     Dosage: 49/51MG

REACTIONS (4)
  - Fluid retention [Unknown]
  - Dyspnoea [Unknown]
  - Blood pressure increased [Unknown]
  - Neck pain [Unknown]
